FAERS Safety Report 10687314 (Version 1)
Quarter: 2014Q4

REPORT INFORMATION
  Report Type: Spontaneous
  Country: US (occurrence: None)
  Receive Date: 20141230
  Receipt Date: 20141230
  Transmission Date: 20150529
  Serious: Yes (Other)
  Sender: FDA-Public Use
  Company Number: CIO14085276

PATIENT
  Sex: Male

DRUGS (1)
  1. CREST BAKING SODA AND PEROXIDE WHITENING WITH TARTAR PROTECTION [Suspect]
     Active Substance: SODIUM FLUORIDE
     Dosage: 1 APPLIC, 2/DAY, INTRAORAL

REACTIONS (5)
  - Lip swelling [None]
  - Mouth swelling [None]
  - Tongue disorder [None]
  - Swelling face [None]
  - Tongue blistering [None]
